FAERS Safety Report 19254983 (Version 1)
Quarter: 2021Q2

REPORT INFORMATION
  Report Type: Spontaneous
  Country: FR (occurrence: FR)
  Receive Date: 20210513
  Receipt Date: 20210513
  Transmission Date: 20210717
  Serious: Yes (Other)
  Sender: FDA-Public Use
  Company Number: FR-PFIZER INC-2021498162

PATIENT
  Sex: Female

DRUGS (3)
  1. LYRICA [Suspect]
     Active Substance: PREGABALIN
     Dosage: 6 DF
  2. SUBUTEX [Suspect]
     Active Substance: BUPRENORPHINE HYDROCHLORIDE
     Dosage: UNK
     Route: 045
  3. BACLOFENE [Suspect]
     Active Substance: BACLOFEN
     Dosage: 4 DF

REACTIONS (4)
  - Feeling drunk [Unknown]
  - Drug abuse [Unknown]
  - Amnesia [Unknown]
  - Vomiting [Unknown]
